FAERS Safety Report 5162327-8 (Version None)
Quarter: 2006Q4

REPORT INFORMATION
  Report Type: 
  Country: None (occurrence: None)
  Receive Date: 20061130
  Receipt Date: 20061120
  Transmission Date: 20070319
  Serious: Yes (Other)
  Sender: FDA-Public Use
  Company Number: GR-ABBOTT-06P-066-0351026-00

PATIENT
  Age: 40 Year
  Sex: Female

DRUGS (1)
  1. KLARICID [Suspect]
     Indication: BRONCHITIS
     Route: 048
     Dates: start: 20040101, end: 20040101

REACTIONS (1)
  - EPILEPSY [None]
